FAERS Safety Report 11145525 (Version 3)
Quarter: 2015Q3

REPORT INFORMATION
  Report Type: Report from Study
  Country: JP (occurrence: JP)
  Receive Date: 20150526
  Receipt Date: 20150710
  Transmission Date: 20151125
  Serious: Yes (Death, Life-Threatening, Other)
  Sender: FDA-Public Use
  Company Number: JP-OTSUKA-2015_001221AA

PATIENT

DRUGS (34)
  1. LASIX M [Concomitant]
     Active Substance: FUROSEMIDE
     Dosage: 20 MG/DAY
     Route: 042
     Dates: start: 20150115, end: 20150121
  2. ESOMEPRAZOLE MAGNESIUM. [Concomitant]
     Active Substance: ESOMEPRAZOLE MAGNESIUM
     Indication: PROPHYLAXIS
     Dosage: 20 MG/DAY
     Route: 048
     Dates: start: 20150109, end: 20150211
  3. POSTERISAN F [Concomitant]
     Indication: PRODUCT USED FOR UNKNOWN INDICATION
     Dosage: QS, QD
     Route: 061
     Dates: start: 20150118, end: 20150125
  4. CERCINE [Concomitant]
     Active Substance: DIAZEPAM
     Indication: ANAESTHETIC PREMEDICATION
     Dosage: 10 MG/DAY
     Route: 048
     Dates: start: 20150120, end: 20150120
  5. ALOXI [Concomitant]
     Active Substance: PALONOSETRON HYDROCHLORIDE
     Indication: PROPHYLAXIS
     Dosage: 0.75 MG/DAY
     Route: 041
     Dates: start: 20150122, end: 20150122
  6. HUMAN SERUM ALBUMIN [Concomitant]
     Active Substance: ALBUMIN (HUMAN)
     Indication: HYPOALBUMINAEMIA
     Dosage: 1 DF/DAY
     Route: 042
     Dates: start: 20150115, end: 20150117
  7. LASIX P [Concomitant]
     Active Substance: FUROSEMIDE
     Indication: FLUID RETENTION
     Dosage: 80 MG/DAY
     Route: 048
     Dates: start: 20150109, end: 20150130
  8. LOXOPROFEN SODIUM [Concomitant]
     Active Substance: LOXOPROFEN SODIUM
     Indication: PROPHYLAXIS
     Dosage: 60 MG/DAY
     Route: 048
     Dates: start: 20150118, end: 20150125
  9. LOXONIN [Concomitant]
     Active Substance: LOXOPROFEN SODIUM
     Indication: PRODUCT USED FOR UNKNOWN INDICATION
     Dosage: 1 DF/DAY
     Route: 061
     Dates: start: 20150123, end: 20150205
  10. LASIX P [Concomitant]
     Active Substance: FUROSEMIDE
     Dosage: 40 MG/DAY
     Route: 048
     Dates: start: 20150131, end: 20150210
  11. MUCOSTA TABLETS 100MG [Concomitant]
     Indication: PROPHYLAXIS
     Dosage: 100 MG/DAY
     Route: 048
     Dates: start: 20150118, end: 20150125
  12. KAYTWO N [Concomitant]
     Active Substance: MENATETRENONE
     Indication: PRODUCT USED FOR UNKNOWN INDICATION
     Dosage: 20 MG/DAY
     Route: 042
     Dates: start: 20150128, end: 20150128
  13. CODEINE PHOSPHATE [Concomitant]
     Active Substance: CODEINE PHOSPHATE
     Indication: PRODUCT USED FOR UNKNOWN INDICATION
     Dosage: 30 MG/DAY
     Route: 048
     Dates: start: 20150207, end: 20150210
  14. TOLVAPTAN [Suspect]
     Active Substance: TOLVAPTAN
     Indication: OEDEMA DUE TO HEPATIC DISEASE
     Dosage: 3.75 MG, QD
     Route: 048
     Dates: start: 20150130, end: 20150131
  15. DEXTROMETHORPHAN HYDROBROMIDE. [Concomitant]
     Active Substance: DEXTROMETHORPHAN HYDROBROMIDE
     Indication: PRODUCT USED FOR UNKNOWN INDICATION
     Dosage: 45 MG/DAY
     Route: 048
     Dates: start: 20150109, end: 20150130
  16. KAYTWO N [Concomitant]
     Active Substance: MENATETRENONE
     Dosage: 10 MG/DAY
     Route: 042
     Dates: start: 20150129, end: 20150214
  17. TOLVAPTAN [Suspect]
     Active Substance: TOLVAPTAN
     Dosage: 7.5 MG, QD
     Route: 048
     Dates: start: 20150201, end: 20150208
  18. HUMAN SERUM ALBUMIN [Concomitant]
     Active Substance: ALBUMIN (HUMAN)
     Indication: RENAL FAILURE
     Dosage: 1 DF/DAY
     Route: 042
     Dates: start: 20150202, end: 20150203
  19. LASIX M [Concomitant]
     Active Substance: FUROSEMIDE
     Dosage: 20 MG/DAY
     Route: 042
     Dates: start: 20150128, end: 20150202
  20. C PARA [Concomitant]
     Indication: PRODUCT USED FOR UNKNOWN INDICATION
     Dosage: 2 ML/DAY
     Route: 042
     Dates: start: 20150115, end: 20150120
  21. DOXORUBICIN HYDROCHLORIDE. [Concomitant]
     Active Substance: DOXORUBICIN HYDROCHLORIDE
     Indication: PRODUCT USED FOR UNKNOWN INDICATION
     Dosage: 20 MG/DAY
     Route: 013
     Dates: start: 20150122
  22. CEFMETAZOLE NA [Concomitant]
     Dosage: 2 G/DAY
     Route: 042
     Dates: start: 20150123, end: 20150129
  23. PREDNISOLONE SODIUM SUCCINATE [Concomitant]
     Active Substance: PREDNISOLONE SODIUM SUCCINATE
     Indication: PRODUCT USED FOR UNKNOWN INDICATION
     Dosage: 10 MG/DAY
     Route: 042
     Dates: start: 20150123, end: 20150125
  24. AMINOLEBAN EN POWDER [Concomitant]
     Active Substance: AMINO ACIDS
     Indication: PRODUCT USED FOR UNKNOWN INDICATION
     Dosage: 150 G/DAY
     Route: 048
     Dates: start: 20150203, end: 20150206
  25. ALDACTONE A [Concomitant]
     Active Substance: SPIRONOLACTONE
     Indication: FLUID RETENTION
     Dosage: 50 MG/DAY
     Route: 048
     Dates: start: 20150109, end: 20150130
  26. ALDACTONE A [Concomitant]
     Active Substance: SPIRONOLACTONE
     Dosage: 25 MG/DAY
     Route: 048
     Dates: start: 20150131, end: 20150210
  27. PENTAZOCINE [Concomitant]
     Active Substance: PENTAZOCINE
     Indication: PRODUCT USED FOR UNKNOWN INDICATION
     Dosage: 15 MG/DAY
     Route: 030
     Dates: start: 20150122, end: 20150122
  28. PROEMEND [Concomitant]
     Active Substance: FOSAPREPITANT
     Indication: PROPHYLAXIS
     Dosage: 150 MG/DAY
     Route: 041
     Dates: start: 20150122, end: 20150122
  29. CEFMETAZOLE NA [Concomitant]
     Indication: PROPHYLAXIS
     Dosage: 1 G/DAY
     Route: 042
     Dates: start: 20150122, end: 20150122
  30. LASIX M [Concomitant]
     Active Substance: FUROSEMIDE
     Indication: FLUID RETENTION
     Dosage: 20 MG/DAY
     Route: 042
     Dates: start: 20150109, end: 20150109
  31. ISOLEUCINE W/LEUCINE/VALINE [Concomitant]
     Indication: PRODUCT USED FOR UNKNOWN INDICATION
     Dosage: 12.45 G/DAY
     Route: 048
     Dates: start: 20150109, end: 20150202
  32. CARBOCISTEINE [Concomitant]
     Active Substance: CARBOCYSTEINE
     Indication: PRODUCT USED FOR UNKNOWN INDICATION
     Dosage: 3 G/DAY
     Route: 048
     Dates: start: 20150109, end: 20150130
  33. ATROPINE SULFATE. [Concomitant]
     Active Substance: ATROPINE SULFATE
     Indication: ANAESTHETIC PREMEDICATION
     Dosage: 0.25 MG/DAY
     Route: 030
     Dates: start: 20150122, end: 20150122
  34. IA-CALL [Concomitant]
     Active Substance: CISPLATIN
     Indication: PRODUCT USED FOR UNKNOWN INDICATION
     Dosage: 50 MG/DAY
     Route: 013
     Dates: start: 20150122, end: 20150122

REACTIONS (7)
  - Lip ulceration [Not Recovered/Not Resolved]
  - Hepatic failure [Fatal]
  - Constipation [Recovered/Resolved]
  - Renal failure [Fatal]
  - Thirst [Not Recovered/Not Resolved]
  - Dermatitis diaper [Not Recovered/Not Resolved]
  - Insomnia [Recovering/Resolving]

NARRATIVE: CASE EVENT DATE: 20150131
